FAERS Safety Report 19198460 (Version 1)
Quarter: 2021Q2

REPORT INFORMATION
  Report Type: Spontaneous
  Country: GB (occurrence: GB)
  Receive Date: 20210430
  Receipt Date: 20210430
  Transmission Date: 20210717
  Serious: Yes (Life-Threatening)
  Sender: FDA-Public Use
  Company Number: GB-TEVA-2021-GB-1905690

PATIENT
  Age: 86 Year
  Sex: Female
  Weight: 54.8 kg

DRUGS (16)
  1. APIXABAN [Suspect]
     Active Substance: APIXABAN
     Indication: CHA2DS2-VASC ANNUAL STROKE RISK MODERATE
     Dosage: 10 MILLIGRAM DAILY;
     Route: 048
     Dates: start: 20210401, end: 20210420
  2. CEFTAZIDIME. [Suspect]
     Active Substance: CEFTAZIDIME
     Indication: SEPSIS
     Dosage: 1 GRAM DAILY;
     Route: 042
     Dates: start: 20210415, end: 20210416
  3. CLOBADERM [Concomitant]
     Indication: ILL-DEFINED DISORDER
  4. COLECALCIFEROL [Concomitant]
     Active Substance: CHOLECALCIFEROL
     Indication: ILL-DEFINED DISORDER
     Dosage: 1000 IU (INTERNATIONAL UNIT) DAILY;
  5. DIPROBASE [Concomitant]
     Active Substance: CHLOROCRESOL
     Indication: ILL-DEFINED DISORDER
  6. FAMOTIDINE. [Concomitant]
     Active Substance: FAMOTIDINE
     Indication: ILL-DEFINED DISORDER
     Dosage: 40 MILLIGRAM DAILY;
  7. NYSTATIN. [Concomitant]
     Active Substance: NYSTATIN
     Indication: ILL-DEFINED DISORDER
  8. RIVAROXABAN [Concomitant]
     Active Substance: RIVAROXABAN
     Indication: ILL-DEFINED DISORDER
  9. DOXYCYCLINE. [Suspect]
     Active Substance: DOXYCYCLINE
     Indication: DRY GANGRENE
     Dosage: 100 MILLIGRAM DAILY;
     Route: 048
     Dates: start: 20210401, end: 20210416
  10. CARBOMER 980 [Concomitant]
     Active Substance: CARBOMER HOMOPOLYMER TYPE C (ALLYL PENTAERYTHRITOL CROSSLINKED)
     Indication: ILL-DEFINED DISORDER
     Dosage: 0.2%
  11. NEORECORMON [Concomitant]
     Active Substance: ERYTHROPOIETIN
     Indication: ILL-DEFINED DISORDER
     Dosage: 10000 UNITS WEEKLY
  12. MEROPENEM. [Suspect]
     Active Substance: MEROPENEM
     Indication: SEPSIS
     Dosage: 4 GRAM DAILY;
     Route: 042
     Dates: start: 20210416, end: 20210418
  13. ATORVASTATIN [Concomitant]
     Active Substance: ATORVASTATIN
     Indication: ILL-DEFINED DISORDER
     Dosage: 40 MILLIGRAM DAILY;
  14. PARACETAMOL [Concomitant]
     Active Substance: ACETAMINOPHEN
     Indication: ILL-DEFINED DISORDER
  15. SODIUM HYALURONATE [Concomitant]
     Active Substance: HYALURONATE SODIUM
     Indication: ILL-DEFINED DISORDER
     Dosage: 8 GTT DAILY; 1 DROP QDS BOTH EYES, EYE DROPS
  16. TILDIEM LA [Concomitant]
     Active Substance: DILTIAZEM HYDROCHLORIDE
     Indication: ILL-DEFINED DISORDER
     Dosage: 200 MILLIGRAM DAILY;

REACTIONS (1)
  - Toxic epidermal necrolysis [Not Recovered/Not Resolved]

NARRATIVE: CASE EVENT DATE: 20210415
